FAERS Safety Report 13083661 (Version 1)
Quarter: 2017Q1

REPORT INFORMATION
  Report Type: Spontaneous
  Country: US (occurrence: US)
  Receive Date: 20170104
  Receipt Date: 20170104
  Transmission Date: 20170428
  Serious: Yes (Other)
  Sender: FDA-Public Use
  Company Number: US-AMGEN-USASP2016185425

PATIENT
  Age: 61 Year
  Sex: Female

DRUGS (2)
  1. PROLIA [Suspect]
     Active Substance: DENOSUMAB
     Indication: OSTEOPOROSIS
     Dosage: UNK
     Route: 065
  2. CALCIUM [Concomitant]
     Active Substance: CALCIUM
     Dosage: 1000 TO 1200 MG, QD

REACTIONS (7)
  - Exostosis [Unknown]
  - Injection site pain [Recovered/Resolved]
  - Blood phosphorus increased [Unknown]
  - Injection site rash [Recovered/Resolved]
  - Neuropathy peripheral [Unknown]
  - Intervertebral disc protrusion [Unknown]
  - Head injury [Unknown]

NARRATIVE: CASE EVENT DATE: 2015
